FAERS Safety Report 6344787-X (Version None)
Quarter: 2009Q3

REPORT INFORMATION
  Report Type: 
  Country: None (occurrence: None)
  Receive Date: 20090904
  Receipt Date: 20090819
  Transmission Date: 20100115
  Serious: Yes (Other)
  Sender: FDA-Public Use
  Company Number: 2009S1001860

PATIENT
  Age: 61 Year
  Sex: Female
  Weight: 71.2147 kg

DRUGS (20)
  1. PHOSPHOSODA FLAVOR NOT SPECIFIED [Suspect]
     Indication: COLONOSCOPY
     Dosage: 135 ML; TOTAL; PO
     Route: 048
     Dates: start: 20060914, end: 20060915
  2. IODINE [Suspect]
     Indication: COMPUTERISED TOMOGRAM
     Dates: start: 20060918, end: 20060918
  3. CT CONTRAST [Suspect]
     Indication: COMPUTERISED TOMOGRAM
     Dates: start: 20060918, end: 20060918
  4. NEURONTIN [Concomitant]
  5. INSULIN [Concomitant]
  6. LIPITOR [Concomitant]
  7. ACCUPRIL [Concomitant]
  8. HYDROCHLOROTHIAZIDE [Concomitant]
  9. CLONAZEPAM [Concomitant]
  10. EFFEXOR [Concomitant]
  11. ZELNORM [Concomitant]
  12. ASPIRIN [Concomitant]
  13. COLACE [Concomitant]
  14. MAGNESIUM [Concomitant]
  15. CALCIUM [Concomitant]
  16. VITAMIN D [Concomitant]
  17. FOSAMAX [Concomitant]
  18. DIOVAN [Concomitant]
  19. FENTANYL [Concomitant]
  20. VERSED [Concomitant]

REACTIONS (3)
  - NEPHROPATHY [None]
  - RENAL FAILURE ACUTE [None]
  - RENAL FAILURE CHRONIC [None]
